FAERS Safety Report 15685070 (Version 4)
Quarter: 2018Q4

REPORT INFORMATION
  Report Type: Report from Study
  Country: None (occurrence: US)
  Receive Date: 20181204
  Receipt Date: 20181228
  Transmission Date: 20190205
  Serious: Yes (Other)
  Sender: FDA-Public Use
  Company Number: US-ABBVIE-18K-163-2578303-00

PATIENT
  Age: 45 Year
  Sex: Female
  Weight: 111.68 kg

DRUGS (9)
  1. CITALOPRAM [Concomitant]
     Active Substance: CITALOPRAM HYDROBROMIDE
     Indication: DEPRESSION
  2. HUMIRA [Suspect]
     Active Substance: ADALIMUMAB
     Indication: PSORIATIC ARTHROPATHY
     Route: 058
     Dates: start: 2016, end: 20180505
  3. HYDROCHLOROTHIAZIDE. [Concomitant]
     Active Substance: HYDROCHLOROTHIAZIDE
     Indication: DIURETIC THERAPY
  4. HUMIRA [Suspect]
     Active Substance: ADALIMUMAB
     Route: 058
     Dates: start: 20181121
  5. FOLIC ACID. [Concomitant]
     Active Substance: FOLIC ACID
     Indication: PRODUCT USED FOR UNKNOWN INDICATION
  6. CITALOPRAM [Concomitant]
     Active Substance: CITALOPRAM HYDROBROMIDE
     Indication: ANXIETY
  7. HUMIRA [Suspect]
     Active Substance: ADALIMUMAB
     Route: 058
     Dates: start: 20180616, end: 20180908
  8. METHOTREXATE. [Concomitant]
     Active Substance: METHOTREXATE
     Indication: PRODUCT USED FOR UNKNOWN INDICATION
  9. LEUCOVORIN. [Concomitant]
     Active Substance: LEUCOVORIN
     Indication: ALOPECIA

REACTIONS (14)
  - Procedural pain [Unknown]
  - Varicose vein [Recovered/Resolved]
  - Cholelithiasis [Recovered/Resolved]
  - Intentional product misuse [Unknown]
  - Exostosis [Unknown]
  - Tendon rupture [Recovering/Resolving]
  - Post procedural inflammation [Recovering/Resolving]
  - Pain in extremity [Recovered/Resolved]
  - Psoriatic arthropathy [Recovering/Resolving]
  - Wrong technique in product usage process [Unknown]
  - Musculoskeletal stiffness [Recovering/Resolving]
  - Dyspepsia [Recovered/Resolved]
  - Phlebectomy [Recovered/Resolved]
  - Musculoskeletal pain [Recovered/Resolved]

NARRATIVE: CASE EVENT DATE: 2016
